FAERS Safety Report 20322573 (Version 1)
Quarter: 2022Q1

REPORT INFORMATION
  Report Type: Spontaneous
  Country: US (occurrence: None)
  Receive Date: 20220110
  Receipt Date: 20220110
  Transmission Date: 20220423
  Serious: Yes (Life-Threatening)
  Sender: FDA-Public Use
  Company Number: None

PATIENT
  Age: 45 Year
  Sex: Female
  Weight: 86.8 kg

DRUGS (5)
  1. CASIRIVIMAB\IMDEVIMAB [Suspect]
     Active Substance: CASIRIVIMAB\IMDEVIMAB
     Indication: COVID-19
     Route: 042
     Dates: start: 20220101, end: 20220101
  2. ALBUTEROL [Concomitant]
     Active Substance: ALBUTEROL
     Dates: start: 20220101, end: 20220101
  3. Chlorhexidine topical [Concomitant]
     Dates: start: 20220101, end: 20220102
  4. INSULIN NOS [Concomitant]
     Active Substance: INSULIN NOS
     Dates: start: 20220101, end: 20220101
  5. ZOSYN [Concomitant]
     Active Substance: PIPERACILLIN SODIUM\TAZOBACTAM SODIUM
     Dates: start: 20220101, end: 20220101

REACTIONS (8)
  - Infusion related reaction [None]
  - Vomiting [None]
  - Hyperhidrosis [None]
  - Erythema [None]
  - Lip swelling [None]
  - Swelling face [None]
  - Respiratory arrest [None]
  - Heart rate increased [None]

NARRATIVE: CASE EVENT DATE: 20220101
